FAERS Safety Report 8110897-X (Version None)
Quarter: 2012Q1

REPORT INFORMATION
  Report Type: 
  Country: None (occurrence: None)
  Receive Date: 20120203
  Receipt Date: 20120201
  Transmission Date: 20120608
  Serious: Yes (Hospitalization)
  Sender: FDA-Public Use
  Company Number: CZ-AMGEN-CZESP2012005535

PATIENT
  Age: 49 Year
  Sex: Female

DRUGS (31)
  1. NEUPOGEN [Suspect]
     Indication: DIFFUSE LARGE B-CELL LYMPHOMA
     Dosage: UNK
     Dates: start: 20110424
  2. PREDNISONE TAB [Suspect]
     Indication: DIFFUSE LARGE B-CELL LYMPHOMA
     Dosage: 110 MG, UNK
     Route: 048
     Dates: start: 20110401
  3. LYRICA [Concomitant]
     Dosage: 75 MG, UNK
     Route: 048
     Dates: start: 20110310, end: 20110413
  4. MYCOMAX [Concomitant]
     Dosage: 400 MG, UNK
     Route: 048
     Dates: start: 20110412, end: 20110418
  5. ZOLPIDEM [Concomitant]
     Dosage: 10 MG, UNK
     Route: 048
     Dates: start: 20110325, end: 20110410
  6. HUMALOG [Concomitant]
     Dosage: 1 UNK, UNK
     Route: 058
     Dates: start: 20100101
  7. ETOPOSIDE [Concomitant]
     Dosage: 112 MG, UNK
     Route: 042
     Dates: start: 20110513
  8. CISPLATIN [Concomitant]
     Dosage: 47 UNK, UNK
     Route: 042
     Dates: start: 20110513
  9. LORISTA [Concomitant]
     Dosage: 50 MG, UNK
     Route: 048
     Dates: start: 20110410
  10. DURAGESIC-100 [Concomitant]
     Dosage: 50 MUG, UNK
     Route: 062
     Dates: start: 20110412
  11. SANDONORM [Concomitant]
     Dosage: 0.5 MG, UNK
     Route: 048
     Dates: start: 20110412
  12. CYCLOPHOSPHAMIDE [Suspect]
     Indication: DIFFUSE LARGE B-CELL LYMPHOMA
     Dosage: 6000 MG, UNK
     Route: 042
     Dates: start: 20110401
  13. PROTHIADEN [Concomitant]
     Dosage: 25 MG, UNK
     Route: 048
     Dates: start: 20110311, end: 20110410
  14. FRAGMIN [Concomitant]
     Dosage: 5000 IU, UNK
     Route: 058
     Dates: start: 20110408
  15. NEULASTA [Suspect]
     Indication: DIFFUSE LARGE B-CELL LYMPHOMA
     Dosage: 6 MG, UNK
     Route: 058
     Dates: start: 20110402
  16. METHYLPREDNISOLONE [Concomitant]
     Dosage: 500 MG, UNK
     Route: 042
     Dates: start: 20110513
  17. VINCRISTINE [Suspect]
     Indication: DIFFUSE LARGE B-CELL LYMPHOMA
     Dosage: 2 MG, UNK
     Route: 042
     Dates: start: 20110401
  18. OMEPRAZOLE [Concomitant]
     Dosage: 20 MG, UNK
     Route: 048
     Dates: start: 20110325, end: 20110410
  19. OMEPRAZOLE [Concomitant]
     Dosage: UNK
     Dates: start: 20110503
  20. DIPYRONE INJ [Concomitant]
     Dosage: 500 MG, UNK
     Route: 048
     Dates: start: 20110304, end: 20110410
  21. ACYCLOVIR [Concomitant]
     Dosage: 800 MG, UNK
     Route: 048
     Dates: start: 20110311
  22. METHOTREXATE [Concomitant]
     Dosage: 12 MG, UNK
     Dates: start: 20110513
  23. CYTARABINE [Concomitant]
     Dosage: 3720 MG, UNK
     Route: 042
     Dates: start: 20110517
  24. RITUXIMAB [Suspect]
     Indication: DIFFUSE LARGE B-CELL LYMPHOMA
     Dosage: 1500 MG, UNK
     Route: 042
     Dates: start: 20110331
  25. ORGAMETRIL [Concomitant]
     Dosage: 5 MG, UNK
     Route: 048
     Dates: start: 20110410
  26. COTRIM [Concomitant]
     Dosage: 960 MG, UNK
     Route: 048
     Dates: start: 20110311
  27. DOXORUBICIN HCL [Suspect]
     Indication: DIFFUSE LARGE B-CELL LYMPHOMA
     Dosage: 142 MG, UNK
     Dates: start: 20110401
  28. SPIRONOLACTONE [Concomitant]
     Dosage: 75 MG, UNK
     Route: 048
     Dates: start: 20110315
  29. ALLOPURINOL [Concomitant]
     Dosage: 100 MG, UNK
     Route: 048
     Dates: start: 20110325, end: 20110523
  30. KALNORMIN [Concomitant]
     Dosage: 3 G, UNK
     Route: 048
     Dates: start: 20110402
  31. ENOXAPARIN SODIUM [Concomitant]
     Dosage: 2000 IU, UNK
     Route: 058
     Dates: start: 20110411

REACTIONS (2)
  - DYSPNOEA EXERTIONAL [None]
  - FEBRILE NEUTROPENIA [None]
